FAERS Safety Report 9793274 (Version 1)
Quarter: 2013Q4

REPORT INFORMATION
  Report Type: Spontaneous
  Country: IT (occurrence: None)
  Receive Date: 20131230
  Receipt Date: 20131230
  Transmission Date: 20140711
  Serious: Yes (Other)
  Sender: FDA-Public Use
  Company Number: SP07345

PATIENT
  Sex: Male
  Weight: 81 kg

DRUGS (3)
  1. COLAZAL [Suspect]
     Indication: DIVERTICULUM
  2. OLMESARTAN / HYDROCHLOROTHIAZIDE [Concomitant]
  3. NORMIX [Concomitant]

REACTIONS (3)
  - Off label use [None]
  - Polymyalgia rheumatica [None]
  - Red blood cell sedimentation rate increased [None]
